FAERS Safety Report 5527569-8 (Version None)
Quarter: 2007Q4

REPORT INFORMATION
  Report Type: 
  Country: None (occurrence: None)
  Receive Date: 20071128
  Receipt Date: 20071115
  Transmission Date: 20080405
  Serious: Yes (Other)
  Sender: FDA-Public Use
  Company Number: US-ELI_LILLY_AND_COMPANY-US200711003706

PATIENT
  Sex: Female

DRUGS (2)
  1. FORTEO [Suspect]
     Indication: OSTEOPOROSIS
     Dosage: 20 UG, DAILY (1/D)
     Dates: start: 20070401
  2. TOPAMAX [Concomitant]
     Dates: start: 20070401

REACTIONS (11)
  - DYSURIA [None]
  - FALL [None]
  - FOOT FRACTURE [None]
  - HYPERTENSION [None]
  - INJECTION SITE HAEMORRHAGE [None]
  - JOINT INJURY [None]
  - JOINT SWELLING [None]
  - LOSS OF CONSCIOUSNESS [None]
  - PAIN [None]
  - RENAL FAILURE [None]
  - VOMITING [None]
